FAERS Safety Report 11625806 (Version 1)
Quarter: 2015Q4

REPORT INFORMATION
  Report Type: Spontaneous
  Country: CA (occurrence: CA)
  Receive Date: 20151013
  Receipt Date: 20151013
  Transmission Date: 20160304
  Serious: Yes (Hospitalization, Other)
  Sender: FDA-Public Use
  Company Number: CA-ABBVIE-15P-028-1478114-00

PATIENT
  Age: 92 Year
  Sex: Male

DRUGS (3)
  1. LUPRON DEPOT [Suspect]
     Active Substance: LEUPROLIDE ACETATE
     Indication: PROSTATE CANCER
     Route: 030
  2. HYDROCHLOROTHIAZIDE. [Suspect]
     Active Substance: HYDROCHLOROTHIAZIDE
     Indication: PRODUCT USED FOR UNKNOWN INDICATION
     Route: 048
  3. FLOMAXTRA XL [Suspect]
     Active Substance: TAMSULOSIN HYDROCHLORIDE
     Indication: PRODUCT USED FOR UNKNOWN INDICATION
     Route: 048

REACTIONS (12)
  - Acute kidney injury [Unknown]
  - Lung consolidation [Unknown]
  - Cardiomegaly [Unknown]
  - Aortic stenosis [Unknown]
  - Atelectasis [Unknown]
  - Ejection fraction abnormal [Unknown]
  - Asthenia [Unknown]
  - Cardiac failure congestive [Recovered/Resolved]
  - Pulmonary oedema [Unknown]
  - Lung disorder [Unknown]
  - Pleural effusion [Recovered/Resolved]
  - Hypotension [Unknown]
